FAERS Safety Report 9559254 (Version 1)
Quarter: 2013Q3

REPORT INFORMATION
  Report Type: Spontaneous
  Country: UA (occurrence: UA)
  Receive Date: 20130927
  Receipt Date: 20130927
  Transmission Date: 20140515
  Serious: Yes (Life-Threatening)
  Sender: FDA-Public Use
  Company Number: PHHY2013UA107490

PATIENT
  Age: 70 Year
  Sex: Female

DRUGS (2)
  1. MIACALCIC [Suspect]
     Indication: OSTEOPOROSIS
     Dosage: UNK UKN, UNK
  2. MIACALCIC [Suspect]
     Indication: OSTEOPOROSIS
     Dosage: UNK UKN, UNK

REACTIONS (1)
  - Metastases to spine [Not Recovered/Not Resolved]
